FAERS Safety Report 5535328-5 (Version None)
Quarter: 2007Q4

REPORT INFORMATION
  Report Type: 
  Country: None (occurrence: None)
  Receive Date: 20071204
  Receipt Date: 20071128
  Transmission Date: 20080405
  Serious: Yes (Life-Threatening, Hospitalization)
  Sender: FDA-Public Use
  Company Number: CLOF-10724

PATIENT
  Age: 7 Year
  Sex: Female
  Weight: 30.2 kg

DRUGS (2)
  1. CLOFARABINE. MFR: GENZYME [Suspect]
     Indication: ACUTE LYMPHOCYTIC LEUKAEMIA
     Dosage: 40 MG QD X 5 IV
     Route: 042
     Dates: start: 20071016, end: 20071020
  2. CYTARABINE [Suspect]
     Dosage: 1000 MG QD X 5 IV
     Route: 042
     Dates: start: 20071015, end: 20071019

REACTIONS (23)
  - ABDOMINAL PAIN [None]
  - ALANINE AMINOTRANSFERASE INCREASED [None]
  - ANXIETY [None]
  - ASPARTATE AMINOTRANSFERASE INCREASED [None]
  - BACK PAIN [None]
  - BK VIRUS INFECTION [None]
  - BLADDER SPASM [None]
  - CHEST PAIN [None]
  - CONSTIPATION [None]
  - COUGH [None]
  - CULTURE URINE POSITIVE [None]
  - CYSTITIS HAEMORRHAGIC [None]
  - DYSPNOEA [None]
  - FEBRILE NEUTROPENIA [None]
  - GENERALISED OEDEMA [None]
  - HAEMOGLOBIN DECREASED [None]
  - HYPOKALAEMIA [None]
  - HYPOTENSION [None]
  - HYPOXIA [None]
  - NAUSEA [None]
  - PNEUMONIA [None]
  - SINUS TACHYCARDIA [None]
  - VOMITING [None]
